FAERS Safety Report 16011616 (Version 3)
Quarter: 2019Q2

REPORT INFORMATION
  Report Type: Spontaneous
  Country: US (occurrence: US)
  Receive Date: 20190227
  Receipt Date: 20190628
  Transmission Date: 20190711
  Serious: No
  Sender: FDA-Public Use
  Company Number: US-PFIZER INC-2019072791

PATIENT
  Age: 70 Year
  Sex: Male
  Weight: 79.38 kg

DRUGS (3)
  1. DILANTIN [Suspect]
     Active Substance: PHENYTOIN
     Indication: SEIZURE
     Dosage: 300 MG, DAILY (100MG, 1 BY MOUTH IN THE MORNING, 2 AT NIGHT)
     Dates: start: 1958
  2. DILANTIN [Suspect]
     Active Substance: PHENYTOIN
     Dosage: 300 MG, 1X/DAY
     Dates: start: 1960
  3. DILANTIN INFATABS [Concomitant]
     Active Substance: PHENYTOIN
     Indication: SEIZURE
     Dosage: 50 MG, DAILY
     Route: 048
     Dates: start: 1993

REACTIONS (1)
  - Chronic obstructive pulmonary disease [Not Recovered/Not Resolved]

NARRATIVE: CASE EVENT DATE: 1999
